FAERS Safety Report 6415173-9 (Version None)
Quarter: 2009Q4

REPORT INFORMATION
  Report Type: 
  Country: None (occurrence: None)
  Receive Date: 20091027
  Receipt Date: 20091022
  Transmission Date: 20100525
  Serious: Yes (Hospitalization)
  Sender: FDA-Public Use
  Company Number: DE-WYE-G04668109

PATIENT
  Age: 83 Year
  Sex: Female

DRUGS (2)
  1. TREVILOR RETARD [Suspect]
     Dosage: 37.5 MG PER DAY FROM AN UNKNOWN DATE UNTIL SEP-2009
     Route: 048
  2. VENLAFAXINE HCL [Suspect]
     Dosage: 37.5 MG PER DAY FROM AN UNKNOWN DATE UNTIL SEP-2009
     Route: 048

REACTIONS (3)
  - ATAXIA [None]
  - FALL [None]
  - HYPONATRAEMIA [None]
